FAERS Safety Report 18208651 (Version 1)
Quarter: 2020Q3

REPORT INFORMATION
  Report Type: Spontaneous
  Country: FR (occurrence: FR)
  Receive Date: 20200828
  Receipt Date: 20200828
  Transmission Date: 20201103
  Serious: Yes (Other)
  Sender: FDA-Public Use
  Company Number: NVSC2020FR235166

PATIENT
  Age: 16 Year
  Sex: Female

DRUGS (3)
  1. PARACETAMOL [Suspect]
     Active Substance: ACETAMINOPHEN
     Indication: WISDOM TEETH REMOVAL
     Dosage: 1 G
     Route: 048
     Dates: start: 20190430, end: 20190504
  2. BIRODOGYL [Suspect]
     Active Substance: METRONIDAZOLE\SPIRAMYCIN
     Indication: WISDOM TEETH REMOVAL
     Dosage: UNK
     Route: 048
     Dates: start: 20190430, end: 20190504
  3. NUREFLEX [Suspect]
     Active Substance: IBUPROFEN
     Indication: WISDOM TEETH REMOVAL
     Dosage: 3 DF
     Route: 048
     Dates: start: 20190430, end: 20190504

REACTIONS (5)
  - Abdominal pain [Recovered/Resolved]
  - Diarrhoea [Recovered/Resolved]
  - Vomiting [Recovered/Resolved]
  - Hepatocellular injury [Recovered/Resolved]
  - Chills [Recovered/Resolved]

NARRATIVE: CASE EVENT DATE: 20190505
